FAERS Safety Report 5099165-0 (Version None)
Quarter: 2006Q3

REPORT INFORMATION
  Report Type: 
  Country: None (occurrence: None)
  Receive Date: 20060728
  Receipt Date: 20060602
  Transmission Date: 20061208
  Serious: No
  Sender: FDA-Public Use
  Company Number: COT_0617_2006

PATIENT
  Age: 76 Year
  Sex: Female
  Weight: 68.0396 kg

DRUGS (22)
  1. VENTAVIS [Suspect]
     Indication: PULMONARY HYPERTENSION
     Dosage: 2.5 MG ONCE IH
     Dates: start: 20060601, end: 20060601
  2. VENTAVIS [Suspect]
     Indication: PULMONARY HYPERTENSION
     Dosage: 5 MCG ONCE IH
     Dates: start: 20060601, end: 20060601
  3. SILDENAFIL [Concomitant]
  4. ADVAIR DISKUS 100/50 [Concomitant]
  5. ATENOLOL [Concomitant]
  6. AVAPRO [Concomitant]
  7. AMIODARONE [Concomitant]
  8. COUMADIN [Concomitant]
  9. DIGOXIN [Concomitant]
  10. MOBIC [Concomitant]
  11. ESTRACE [Concomitant]
  12. LASIX [Concomitant]
  13. POTASSIUM CHLORIDE [Concomitant]
  14. PREVACID [Concomitant]
  15. SYNTHROID [Concomitant]
  16. DILAUDID [Concomitant]
  17. XANAX [Concomitant]
  18. OXYGEN [Concomitant]
  19. CALCIUM GLUCONATE [Concomitant]
  20. MULTI-VITAMIN [Concomitant]
  21. ZINC [Concomitant]
  22. AMINO ACID INJ [Concomitant]

REACTIONS (6)
  - ABDOMINAL PAIN [None]
  - ABDOMINAL PAIN UPPER [None]
  - CHEST DISCOMFORT [None]
  - DECREASED APPETITE [None]
  - FLUSHING [None]
  - HEADACHE [None]
